FAERS Safety Report 18374745 (Version 1)
Quarter: 2020Q4

REPORT INFORMATION
  Report Type: Report from Study
  Country: None (occurrence: US)
  Receive Date: 20201013
  Receipt Date: 20201013
  Transmission Date: 20210114
  Serious: Yes (Hospitalization, Other)
  Sender: FDA-Public Use
  Company Number: US-ABBVIE-19K-163-3206122-00

PATIENT
  Age: 27 Year
  Sex: Female

DRUGS (3)
  1. PRENATAL VITAMINS [Concomitant]
     Active Substance: VITAMINS
     Indication: PRODUCT USED FOR UNKNOWN INDICATION
     Dates: start: 201911
  2. HUMIRA [Suspect]
     Active Substance: ADALIMUMAB
     Indication: HIDRADENITIS
     Route: 058
     Dates: start: 201903, end: 201910
  3. HUMIRA [Suspect]
     Active Substance: ADALIMUMAB
     Route: 058
     Dates: start: 20200916

REACTIONS (7)
  - Suppressed lactation [Not Recovered/Not Resolved]
  - Hidradenitis [Unknown]
  - Cervical dilatation [Not Recovered/Not Resolved]
  - Foetal malposition [Not Recovered/Not Resolved]
  - Maternal exposure during pregnancy [Unknown]
  - Amniotic fluid volume decreased [Not Recovered/Not Resolved]
  - Placental disorder [Recovered/Resolved]

NARRATIVE: CASE EVENT DATE: 2019
